FAERS Safety Report 20924171 (Version 1)
Quarter: 2022Q2

REPORT INFORMATION
  Report Type: Spontaneous
  Country: GB (occurrence: GB)
  Receive Date: 20220607
  Receipt Date: 20220607
  Transmission Date: 20220721
  Serious: Yes (Hospitalization)
  Sender: FDA-Public Use
  Company Number: None

PATIENT
  Age: 43 Year
  Sex: Female
  Weight: 107 kg

DRUGS (4)
  1. RISDIPLAM [Suspect]
     Active Substance: RISDIPLAM
     Indication: Spinal muscular atrophy
     Route: 048
     Dates: start: 202012
  2. CHOLECALCIFEROL [Concomitant]
     Active Substance: CHOLECALCIFEROL
  3. ACETAMINOPHEN [Concomitant]
     Active Substance: ACETAMINOPHEN
  4. PREGABALIN [Concomitant]
     Active Substance: PREGABALIN

REACTIONS (1)
  - Lower gastrointestinal haemorrhage [Not Recovered/Not Resolved]

NARRATIVE: CASE EVENT DATE: 20210914
